FAERS Safety Report 10334376 (Version 4)
Quarter: 2016Q1

REPORT INFORMATION
  Report Type: Report from Study
  Country: JP (occurrence: JP)
  Receive Date: 20140723
  Receipt Date: 20160311
  Transmission Date: 20160525
  Serious: Yes (Hospitalization)
  Sender: FDA-Public Use
  Company Number: JP-JNJFOC-20140713168

PATIENT
  Age: 39 Year
  Sex: Male
  Weight: 59 kg

DRUGS (30)
  1. GOLIMUMAB [Suspect]
     Active Substance: GOLIMUMAB
     Indication: COLITIS ULCERATIVE
     Route: 058
     Dates: start: 20140225, end: 20140225
  2. CALONAL [Concomitant]
     Active Substance: ACETAMINOPHEN
     Route: 048
     Dates: start: 20140304, end: 20140305
  3. BUSCOPAN [Concomitant]
     Active Substance: BUTYLSCOPOLAMINE BROMIDE
     Indication: COLONOSCOPY
     Route: 042
     Dates: start: 20140213, end: 20140213
  4. BUSCOPAN [Concomitant]
     Active Substance: BUTYLSCOPOLAMINE BROMIDE
     Indication: COLONOSCOPY
     Route: 042
     Dates: start: 20140403, end: 20140403
  5. ONON [Concomitant]
     Active Substance: PRANLUKAST
     Route: 048
     Dates: start: 20140304, end: 20140305
  6. NIFLEC [Concomitant]
     Active Substance: BICARBONATE ION\POLYETHYLENE GLYCOLS\POTASSIUM CATION\SODIUM CHLORIDE\SODIUM SULFATE ANHYDROUS
     Indication: COLONOSCOPY
     Route: 048
     Dates: start: 20140403, end: 20140403
  7. GASCON [Concomitant]
     Active Substance: DIMETHICONE
     Indication: COLONOSCOPY
     Route: 048
     Dates: start: 20140213, end: 20140213
  8. NIFLEC [Concomitant]
     Active Substance: BICARBONATE ION\POLYETHYLENE GLYCOLS\POTASSIUM CATION\SODIUM CHLORIDE\SODIUM SULFATE ANHYDROUS
     Indication: COLONOSCOPY
     Route: 048
     Dates: start: 20140528, end: 20140528
  9. OPYSTAN [Concomitant]
     Active Substance: MEPERIDINE
     Indication: COLONOSCOPY
     Route: 042
     Dates: start: 20140213, end: 20140213
  10. NAIXAN [Concomitant]
     Active Substance: NAPROXEN SODIUM
     Route: 048
     Dates: start: 20140716, end: 20140721
  11. GENTACIN [Concomitant]
     Active Substance: GENTAMICIN SULFATE
     Dosage: AS NEEDED
     Route: 061
     Dates: start: 20140716
  12. NEUROTROPIN [Concomitant]
     Active Substance: NEUROTROPIN
     Dosage: 3.6 LU
     Route: 041
     Dates: start: 20140716, end: 20140722
  13. GOLIMUMAB [Suspect]
     Active Substance: GOLIMUMAB
     Indication: COLITIS ULCERATIVE
     Route: 058
     Dates: start: 20140624, end: 20140624
  14. TALION [Concomitant]
     Active Substance: BEPOTASTINE
     Route: 048
     Dates: start: 20140304, end: 20140305
  15. GASCON [Concomitant]
     Active Substance: DIMETHICONE
     Indication: COLONOSCOPY
     Route: 048
     Dates: start: 20140528, end: 20140528
  16. BUSCOPAN [Concomitant]
     Active Substance: BUTYLSCOPOLAMINE BROMIDE
     Indication: COLONOSCOPY
     Route: 042
     Dates: start: 20140528, end: 20140528
  17. NIFLEC [Concomitant]
     Active Substance: BICARBONATE ION\POLYETHYLENE GLYCOLS\POTASSIUM CATION\SODIUM CHLORIDE\SODIUM SULFATE ANHYDROUS
     Indication: COLONOSCOPY
     Route: 048
     Dates: start: 20140213, end: 20140213
  18. GASCON [Concomitant]
     Active Substance: DIMETHICONE
     Indication: COLONOSCOPY
     Route: 048
     Dates: start: 20140403, end: 20140403
  19. METHYCOOL [Concomitant]
     Active Substance: METHYLCOBALAMIN
     Route: 048
     Dates: start: 20140716
  20. VICCLOX [Concomitant]
     Active Substance: ACYCLOVIR SODIUM
     Route: 041
     Dates: start: 20140716, end: 20140722
  21. HORIZON [Concomitant]
     Active Substance: DIAZEPAM
     Indication: COLONOSCOPY
     Route: 042
     Dates: start: 20140213, end: 20140213
  22. OPYSTAN [Concomitant]
     Active Substance: MEPERIDINE
     Indication: COLONOSCOPY
     Route: 042
     Dates: start: 20140528, end: 20140528
  23. HYALEIN [Concomitant]
     Active Substance: HYALURONATE SODIUM
     Route: 047
     Dates: start: 20140717
  24. RELENZA [Concomitant]
     Active Substance: ZANAMIVIR
     Route: 055
     Dates: start: 20140304, end: 20140305
  25. HORIZON [Concomitant]
     Active Substance: DIAZEPAM
     Indication: COLONOSCOPY
     Route: 042
     Dates: start: 20140528, end: 20140528
  26. HORIZON [Concomitant]
     Active Substance: DIAZEPAM
     Indication: COLONOSCOPY
     Route: 042
     Dates: start: 20140403, end: 20140403
  27. OPYSTAN [Concomitant]
     Active Substance: MEPERIDINE
     Indication: COLONOSCOPY
     Route: 042
     Dates: start: 20140403, end: 20140403
  28. AZUNOL [Concomitant]
     Active Substance: SODIUM GUALENATE
     Route: 061
     Dates: start: 20140403
  29. ASACOL [Concomitant]
     Active Substance: MESALAMINE
     Indication: COLITIS ULCERATIVE
     Route: 048
  30. GOLIMUMAB [Suspect]
     Active Substance: GOLIMUMAB
     Indication: COLITIS ULCERATIVE
     Route: 058
     Dates: start: 20140310, end: 20140310

REACTIONS (1)
  - Herpes zoster [Recovered/Resolved]

NARRATIVE: CASE EVENT DATE: 20140716
